FAERS Safety Report 8906716 (Version 3)
Quarter: 2013Q4

REPORT INFORMATION
  Report Type: Spontaneous
  Country: FR (occurrence: FR)
  Receive Date: 20121114
  Receipt Date: 20131031
  Transmission Date: 20140711
  Serious: Yes (Hospitalization)
  Sender: FDA-Public Use
  Company Number: FR-PFIZER INC-2012280533

PATIENT
  Age: 52 Year
  Sex: Male

DRUGS (12)
  1. SOLU-MEDROL [Suspect]
     Indication: ENCEPHALITIS
     Dosage: UNK
     Route: 042
     Dates: start: 20120811, end: 20120816
  2. SOLU-MEDROL [Suspect]
     Dosage: UNK
     Route: 042
     Dates: start: 20120827, end: 20120903
  3. OCTAGAM [Suspect]
     Indication: ENCEPHALITIS
     Dosage: UNK
     Route: 042
     Dates: start: 20120811, end: 20120816
  4. OCTAGAM [Suspect]
     Dosage: UNK
     Route: 042
     Dates: start: 20120827, end: 20120903
  5. MABTHERA [Suspect]
     Indication: ENCEPHALITIS
     Dosage: 750 MG, SINGLE
     Route: 042
     Dates: start: 20120921, end: 20120921
  6. MABTHERA [Suspect]
     Dosage: 750 MG, SINGLE
     Route: 042
     Dates: start: 20120928, end: 20120928
  7. INEXIUM 20 [Concomitant]
     Dosage: 1 DOSAGE FORM IN THE EVENING
  8. SPECIAFOLDINE [Concomitant]
     Dosage: 5 MG, 1 DOSAGE FORM THREE TIMES PER DAY
  9. PRINCI-B [Concomitant]
     Dosage: 1 DOSAGE FORM THREE TIMES PER DAY
  10. VALIUM [Concomitant]
     Dosage: 50 DROPS/DAY
  11. EPITOMAX [Concomitant]
     Dosage: 1 DF, 2X/DAY, 1 DOSAGE FORM IN THE MORNING AND IN THE EVENING
  12. TRILEPTAL [Concomitant]
     Dosage: 900 IN THE MORNING, 1250 IN THE EVENING

REACTIONS (4)
  - Prostatitis [Unknown]
  - Pseudomonas infection [Not Recovered/Not Resolved]
  - Left ventricular failure [Recovered/Resolved]
  - Drug ineffective [Unknown]
